FAERS Safety Report 16740899 (Version 1)
Quarter: 2019Q3

REPORT INFORMATION
  Report Type: Spontaneous
  Country: US (occurrence: US)
  Receive Date: 20190709
  Receipt Date: 20190709
  Transmission Date: 20191005
  Serious: Yes (Death, Hospitalization)
  Sender: FDA-Public Use
  Company Number: None

PATIENT
  Age: 67 Year
  Sex: Male
  Weight: 89.8 kg

DRUGS (2)
  1. GEMCITABINE HYDROCHLORIDE. [Suspect]
     Active Substance: GEMCITABINE HYDROCHLORIDE
     Dates: end: 20190625
  2. CISPLATIN. [Suspect]
     Active Substance: CISPLATIN
     Dates: end: 20190625

REACTIONS (9)
  - Fluid overload [None]
  - Renal replacement therapy [None]
  - Multiple organ dysfunction syndrome [None]
  - Atrial fibrillation [None]
  - Acute kidney injury [None]
  - Procedural complication [None]
  - Endotracheal intubation complication [None]
  - Dyspnoea [None]
  - Hypoxia [None]

NARRATIVE: CASE EVENT DATE: 20190625
